FAERS Safety Report 14987136 (Version 1)
Quarter: 2018Q2

REPORT INFORMATION
  Report Type: Spontaneous
  Country: GB (occurrence: CA)
  Receive Date: 20180608
  Receipt Date: 20180608
  Transmission Date: 20180711
  Serious: Yes (Other)
  Sender: FDA-Public Use
  Company Number: GB-CONCORDIA PHARMACEUTICALS INC.-E2B_00012263

PATIENT
  Age: 60 Year
  Sex: Female

DRUGS (16)
  1. MEPERIDINE HYDROCHLORIDE. [Suspect]
     Active Substance: MEPERIDINE HYDROCHLORIDE
     Indication: RHEUMATOID ARTHRITIS
  2. ARAVA [Suspect]
     Active Substance: LEFLUNOMIDE
  3. LYRICA [Suspect]
     Active Substance: PREGABALIN
  4. ERYTHROMYCIN. [Suspect]
     Active Substance: ERYTHROMYCIN
  5. ARTHROTEC [Suspect]
     Active Substance: DICLOFENAC SODIUM\MISOPROSTOL
     Indication: RHEUMATOID ARTHRITIS
  6. BISOPROLOL FUMARATE. [Suspect]
     Active Substance: BISOPROLOL FUMARATE
  7. NORFLOXACIN [Suspect]
     Active Substance: NORFLOXACIN
  8. PLAQUENIL [Suspect]
     Active Substance: HYDROXYCHLOROQUINE SULFATE
     Dosage: 400 MG
     Route: 048
  9. ERYTHROMYCIN. [Suspect]
     Active Substance: ERYTHROMYCIN
  10. DEMEROL [Suspect]
     Active Substance: MEPERIDINE HYDROCHLORIDE
  11. CELEBREX [Suspect]
     Active Substance: CELECOXIB
     Dosage: 200 MG, QD
     Route: 048
  12. METHOTREXATE. [Suspect]
     Active Substance: METHOTREXATE
  13. METRONIDAZOLE. [Suspect]
     Active Substance: METRONIDAZOLE
  14. HUMIRA [Suspect]
     Active Substance: ADALIMUMAB
     Indication: RHEUMATOID ARTHRITIS
     Dosage: 400 MG
     Route: 058
  15. CECLOR [Suspect]
     Active Substance: CEFACLOR
  16. LEFLUNOMIDE. [Suspect]
     Active Substance: LEFLUNOMIDE

REACTIONS (5)
  - Drug effect incomplete [Unknown]
  - Infection [Unknown]
  - Drug intolerance [Unknown]
  - International normalised ratio fluctuation [Unknown]
  - Drug hypersensitivity [Unknown]
